FAERS Safety Report 15725426 (Version 3)
Quarter: 2019Q1

REPORT INFORMATION
  Report Type: Spontaneous
  Country: US (occurrence: US)
  Receive Date: 20181215
  Receipt Date: 20190107
  Transmission Date: 20190417
  Serious: Yes (Other)
  Sender: FDA-Public Use
  Company Number: US-AUROBINDO-AUR-APL-2018-059791

PATIENT
  Age: 88 Year
  Sex: Female
  Weight: 44.44 kg

DRUGS (2)
  1. GABAPENTIN CAPSULES 100 MG [Suspect]
     Active Substance: GABAPENTIN
     Indication: NERVE INJURY
     Dosage: 100MG CAPSULE IN THE MORNING
     Route: 065
  2. GABAPENTIN CAPSULES 100 MG [Suspect]
     Active Substance: GABAPENTIN
     Dosage: 300MG CAPSULE IN THE EVENING
     Route: 065

REACTIONS (2)
  - Urinary retention [Unknown]
  - Vision blurred [Unknown]
